FAERS Safety Report 7359216-7 (Version None)
Quarter: 2011Q1

REPORT INFORMATION
  Report Type: 
  Country: None (occurrence: None)
  Receive Date: 20110317
  Receipt Date: 20110303
  Transmission Date: 20110831
  Serious: Yes (Hospitalization, Other)
  Sender: FDA-Public Use
  Company Number: PHHY2011US17651

PATIENT

DRUGS (4)
  1. RITUXIMAB [Concomitant]
     Dosage: 375 MG/M2,WEEKLY
     Route: 042
  2. EVEROLIMUS [Suspect]
     Dosage: 10MG
  3. RITUXIMAB [Concomitant]
     Dosage: 375 MG/M2 QMO
     Route: 042
  4. EVEROLIMUS [Suspect]
     Dosage: 5 MG, UNK
     Route: 048
     Dates: start: 20100201

REACTIONS (8)
  - NEOPLASM MALIGNANT [None]
  - ASCITES [None]
  - NAUSEA [None]
  - DIARRHOEA [None]
  - RASH [None]
  - ABDOMINAL PAIN LOWER [None]
  - VOMITING [None]
  - ENTERITIS [None]
